FAERS Safety Report 5090066-0 (Version None)
Quarter: 2006Q3

REPORT INFORMATION
  Report Type: 
  Country: None (occurrence: None)
  Receive Date: 20060801
  Receipt Date: 20060117
  Transmission Date: 20061208
  Serious: Yes (Death)
  Sender: FDA-Public Use
  Company Number: OMPQ-PR-0601S-0015

PATIENT
  Age: 46 Year
  Sex: Female

DRUGS (1)
  1. OMNIPAQUE 140 [Suspect]
     Indication: ENDOMETRIAL CANCER
     Dosage: 135 ML, SINGLE DOSE, IV
     Route: 042
     Dates: start: 20051228, end: 20051228

REACTIONS (1)
  - ASTHMA [None]
